FAERS Safety Report 8016363-4 (Version None)
Quarter: 2011Q4

REPORT INFORMATION
  Report Type: 
  Country: None (occurrence: None)
  Receive Date: 20111230
  Receipt Date: 20111222
  Transmission Date: 20120403
  Serious: Yes (Other)
  Sender: FDA-Public Use
  Company Number: DE-BAYER-2011-124403

PATIENT
  Age: 76 Year
  Sex: Female

DRUGS (9)
  1. TORSEMIDE [Suspect]
     Dosage: 10 MG, 6 IN 1 ONCE
     Route: 048
  2. ASPIRIN [Suspect]
     Dosage: 100 MG, QID
     Route: 048
  3. METOPROLOL SUCCINATE [Suspect]
     Dosage: (47,5 MG,8 IN 1 ONCE)
     Route: 048
  4. CORVATON [Suspect]
     Dosage: 8 MG, 4 IN 1 ONCE
     Route: 048
  5. ARCOXIA [Suspect]
     Dosage: 90 MG, QID
     Route: 048
  6. TELMISARTAN [Suspect]
     Dosage: 40 MG, QID
     Route: 048
  7. CALCIUM CARBONATE [Suspect]
     Dosage: 4 IN 1 ONCE
     Route: 048
  8. PANTOPRAZOLE SODIUM [Suspect]
     Dosage: 40 MG, QID
     Route: 048
  9. ISOSORBIDE MONONITRATE [Suspect]
     Dosage: 40 MG, 8 IN 1 ONCE
     Route: 048

REACTIONS (1)
  - SUICIDE ATTEMPT [None]
